FAERS Safety Report 6839992-X (Version None)
Quarter: 2010Q3

REPORT INFORMATION
  Report Type: 
  Country: None (occurrence: None)
  Receive Date: 20100709
  Receipt Date: 20100629
  Transmission Date: 20110219
  Serious: Yes (Other)
  Sender: FDA-Public Use
  Company Number: 2010SP020878

PATIENT
  Age: 23 Year
  Sex: Female
  Weight: 69.8539 kg

DRUGS (1)
  1. IMPLANON [Suspect]
     Indication: PRODUCT USED FOR UNKNOWN INDICATION
     Dates: start: 20090804, end: 20100409

REACTIONS (5)
  - CRYING [None]
  - DEPRESSED MOOD [None]
  - DEPRESSION [None]
  - HEADACHE [None]
  - SUICIDAL IDEATION [None]
